FAERS Safety Report 9175985 (Version 1)
Quarter: 2013Q1

REPORT INFORMATION
  Report Type: Spontaneous
  Country: US (occurrence: US)
  Receive Date: 20130320
  Receipt Date: 20130320
  Transmission Date: 20140127
  Serious: Yes (Hospitalization, Other)
  Sender: FDA-Public Use
  Company Number: US-MYLANLABS-2013S1005657

PATIENT
  Age: 14 Year
  Sex: Male

DRUGS (10)
  1. MYCOPHENOLATE MOFETIL [Suspect]
     Indication: IMMUNOSUPPRESSION
     Dosage: 650 MG/M2/DAY
     Route: 048
  2. MYCOPHENOLATE MOFETIL [Suspect]
     Indication: IMMUNOSUPPRESSION
     Dosage: 3000 MG/M2/DAY
     Route: 048
  3. MYCOPHENOLATE MOFETIL [Suspect]
     Indication: IMMUNOSUPPRESSION
     Dosage: 3000 MG/M2/DAY
     Route: 048
  4. LOSARTAN [Concomitant]
  5. FERROUS SULFATE [Concomitant]
  6. DARBEPOETIN [Concomitant]
  7. OMEPRAZOLE [Concomitant]
  8. FAMOTIDINE [Concomitant]
  9. MULTIVITAMIN [Concomitant]
  10. TRIMETHOPRIM SULFAMETHOXAZOLE [Concomitant]
     Indication: INFECTION PROPHYLAXIS

REACTIONS (1)
  - Enterocolitis [Recovered/Resolved]
